FAERS Safety Report 6093122-3 (Version None)
Quarter: 2009Q1

REPORT INFORMATION
  Report Type: 
  Country: None (occurrence: None)
  Receive Date: 20090226
  Receipt Date: 20090218
  Transmission Date: 20090719
  Serious: Yes (Death)
  Sender: FDA-Public Use
  Company Number: US-JNJFOC-20090103153

PATIENT
  Age: 2 Year
  Sex: Male
  Weight: 13.61 kg

DRUGS (5)
  1. TYLENOL (CAPLET) [Suspect]
     Route: 048
  2. TYLENOL (CAPLET) [Suspect]
     Indication: PYREXIA
     Route: 048
  3. TYLENOL (CAPLET) [Suspect]
     Indication: RHINORRHOEA
     Route: 048
  4. TYLENOL (CAPLET) [Suspect]
     Indication: NASOPHARYNGITIS
     Route: 048
  5. ANTIBIOTICS [Concomitant]

REACTIONS (2)
  - OVERDOSE [None]
  - VOMITING [None]
